FAERS Safety Report 19238843 (Version 7)
Quarter: 2021Q3

REPORT INFORMATION
  Report Type: Report from Study
  Country: BR (occurrence: BR)
  Receive Date: 20210510
  Receipt Date: 20210927
  Transmission Date: 20211014
  Serious: Yes (Other)
  Sender: FDA-Public Use
  Company Number: NVSC2021BR073634

PATIENT
  Age: 65 Year
  Sex: Female

DRUGS (6)
  1. KISQALI [Suspect]
     Active Substance: RIBOCICLIB
     Indication: NEOPLASM MALIGNANT
     Dosage: 3 DF, QD (DURING THE DAY FOR 21 DAYS)
     Route: 048
     Dates: start: 20210219, end: 202104
  2. KISQALI [Suspect]
     Active Substance: RIBOCICLIB
     Indication: LUNG NEOPLASM MALIGNANT
     Dosage: 3 DF OF 200 MG (DURING THE DAY FOR 21 DAYS)
     Route: 048
     Dates: start: 20210504
  3. KISQALI [Suspect]
     Active Substance: RIBOCICLIB
     Dosage: 2 DF, QD (2 TABLETS DAILY)
     Route: 065
     Dates: start: 20210219
  4. ZOLPIDEM [Suspect]
     Active Substance: ZOLPIDEM TARTRATE
     Indication: INSOMNIA
     Dosage: 1 DF (1 TABLET OF 10MG), (DURING THE DAY (AT NIGHT)) (ABOUT 1 MONTH AGO)
     Route: 048
  5. ESCITALOPRAM [Concomitant]
     Active Substance: ESCITALOPRAM OXALATE
     Indication: ANXIETY
     Dosage: 1 DF (01 TABLET OF 15MG DURING THE DAY (IN THE MORNING)) (ABOUT 03 YEARS)
     Route: 048
  6. ATORVASTATIN [Concomitant]
     Active Substance: ATORVASTATIN
     Indication: BLOOD CHOLESTEROL INCREASED
     Dosage: 1 DF (1 TABLET OF 20 MG, DURING THE DAY) (ABOUT 06 YEARS AGO)
     Route: 048

REACTIONS (18)
  - Decreased immune responsiveness [Recovered/Resolved]
  - Abdominal distension [Recovered/Resolved]
  - Decreased appetite [Recovering/Resolving]
  - Cough [Recovering/Resolving]
  - Pulmonary oedema [Recovered/Resolved]
  - Nausea [Unknown]
  - Headache [Recovering/Resolving]
  - Asthenia [Recovered/Resolved]
  - Decreased immune responsiveness [Recovered/Resolved]
  - Discouragement [Recovering/Resolving]
  - Vision blurred [Not Recovered/Not Resolved]
  - Pain in extremity [Recovering/Resolving]
  - Decreased immune responsiveness [Unknown]
  - Nausea [Recovered/Resolved]
  - Product use in unapproved indication [Unknown]
  - Insomnia [Recovering/Resolving]
  - General physical health deterioration [Unknown]
  - Fatigue [Unknown]

NARRATIVE: CASE EVENT DATE: 202102
